FAERS Safety Report 17543646 (Version 4)
Quarter: 2020Q4

REPORT INFORMATION
  Report Type: Spontaneous
  Country: US (occurrence: US)
  Receive Date: 20200316
  Receipt Date: 20201103
  Transmission Date: 20210113
  Serious: No
  Sender: FDA-Public Use
  Company Number: US-BIOGEN-2020BI00840738

PATIENT
  Age: 46 Year
  Sex: Male

DRUGS (6)
  1. TECFIDERA [Suspect]
     Active Substance: DIMETHYL FUMARATE
     Route: 048
     Dates: start: 20200219
  2. TECFIDERA [Suspect]
     Active Substance: DIMETHYL FUMARATE
     Route: 048
     Dates: start: 2020
  3. TECFIDERA [Suspect]
     Active Substance: DIMETHYL FUMARATE
     Indication: MULTIPLE SCLEROSIS
     Route: 048
     Dates: start: 20200207
  4. TECFIDERA [Suspect]
     Active Substance: DIMETHYL FUMARATE
     Dosage: STARTING DOSE
     Route: 048
     Dates: start: 20200211
  5. TECFIDERA [Suspect]
     Active Substance: DIMETHYL FUMARATE
     Route: 048
     Dates: start: 2020
  6. TECFIDERA [Suspect]
     Active Substance: DIMETHYL FUMARATE
     Dosage: MAINTENANCE DOSE
     Route: 048
     Dates: start: 202002

REACTIONS (20)
  - Anxiety [Unknown]
  - Feeling hot [Not Recovered/Not Resolved]
  - Multiple sclerosis [Not Recovered/Not Resolved]
  - Irritability [Not Recovered/Not Resolved]
  - Illness [Unknown]
  - Flushing [Unknown]
  - Balance disorder [Not Recovered/Not Resolved]
  - Influenza [Unknown]
  - Gastrointestinal disorder [Unknown]
  - Memory impairment [Not Recovered/Not Resolved]
  - Hypoaesthesia [Unknown]
  - Nasopharyngitis [Unknown]
  - Vomiting [Recovered/Resolved]
  - Product dose omission in error [Unknown]
  - Sleep disorder [Not Recovered/Not Resolved]
  - Ear pruritus [Unknown]
  - Pruritus [Recovered/Resolved]
  - Photophobia [Not Recovered/Not Resolved]
  - Emotional distress [Unknown]
  - Nausea [Recovered/Resolved]

NARRATIVE: CASE EVENT DATE: 20200211
